FAERS Safety Report 7050935-9 (Version None)
Quarter: 2010Q4

REPORT INFORMATION
  Report Type: 
  Country: None (occurrence: None)
  Receive Date: 20101019
  Receipt Date: 20101005
  Transmission Date: 20110411
  Serious: Yes (Other)
  Sender: FDA-Public Use
  Company Number: US-BAYER-200917116NA

PATIENT
  Sex: Female

DRUGS (1)
  1. MIRENA [Suspect]
     Indication: PRODUCT USED FOR UNKNOWN INDICATION
     Dosage: CONTINUOUS
     Route: 015

REACTIONS (7)
  - ECTOPIC PREGNANCY [None]
  - INTRA-ABDOMINAL HAEMORRHAGE [None]
  - OVARIAN MASS [None]
  - PELVIC PAIN [None]
  - UTERINE MASS [None]
  - UTERINE PERFORATION [None]
  - VAGINAL HAEMORRHAGE [None]
